FAERS Safety Report 13914168 (Version 1)
Quarter: 2017Q3

REPORT INFORMATION
  Report Type: Spontaneous
  Country: US (occurrence: US)
  Receive Date: 20170828
  Receipt Date: 20170828
  Transmission Date: 20171127
  Serious: No
  Sender: FDA-Public Use
  Company Number: US-ROCHE-1129377

PATIENT
  Sex: Male
  Weight: 81.3 kg

DRUGS (1)
  1. NUTROPIN [Suspect]
     Active Substance: SOMATROPIN
     Indication: HYPOPITUITARISM
     Dosage: 0.1 ML (1 ML)
     Route: 058
     Dates: start: 19911011

REACTIONS (1)
  - Insulin-like growth factor decreased [Unknown]
